FAERS Safety Report 9263902 (Version 7)
Quarter: 2013Q4

REPORT INFORMATION
  Report Type: Spontaneous
  Country: AR (occurrence: AR)
  Receive Date: 20130430
  Receipt Date: 20131115
  Transmission Date: 20140711
  Serious: Yes (Other)
  Sender: FDA-Public Use
  Company Number: AR-PFIZER INC-2013131361

PATIENT
  Age: 50 Year
  Sex: Female

DRUGS (3)
  1. SUTENT [Suspect]
     Indication: MEDIASTINUM NEOPLASM
     Dosage: 50 MG, DAILY (4 WEEKS ON AND 2 WEEKS OFF)
     Dates: start: 20121201, end: 201212
  2. SUTENT [Suspect]
     Indication: PULMONARY MASS
  3. SUTENT [Suspect]
     Indication: UTERINE CANCER

REACTIONS (4)
  - Wound haemorrhage [Not Recovered/Not Resolved]
  - Wound infection [Not Recovered/Not Resolved]
  - Off label use [Unknown]
  - Impaired healing [Recovering/Resolving]
